FAERS Safety Report 8286396-1 (Version None)
Quarter: 2012Q2

REPORT INFORMATION
  Report Type: 
  Country: None (occurrence: None)
  Receive Date: 20120411
  Receipt Date: 20120411
  Transmission Date: 20120825
  Serious: Yes (Life-Threatening, Hospitalization)
  Sender: FDA-Public Use
  Company Number: None

PATIENT
  Age: 13 Year
  Sex: Female
  Weight: 61.2356 kg

DRUGS (4)
  1. LISINOPRIL [Suspect]
     Indication: URTICARIA
     Dosage: 10 MG 1X DAY
     Dates: start: 20010101
  2. LISINOPRIL [Suspect]
     Indication: SWELLING
     Dosage: 10 MG 1X DAY
     Dates: start: 20010101
  3. LISINOPRIL [Suspect]
     Indication: URTICARIA
     Dosage: 10 MG 1X DAY
     Dates: start: 20120301
  4. LISINOPRIL [Suspect]
     Indication: SWELLING
     Dosage: 10 MG 1X DAY
     Dates: start: 20120301

REACTIONS (3)
  - SWELLING [None]
  - SOCIAL PROBLEM [None]
  - URTICARIA [None]
